FAERS Safety Report 21373827 (Version 2)
Quarter: 2022Q4

REPORT INFORMATION
  Report Type: Report from Study
  Country: BR (occurrence: BR)
  Receive Date: 20220926
  Receipt Date: 20221217
  Transmission Date: 20230112
  Serious: Yes (Other)
  Sender: FDA-Public Use
  Company Number: BR-ABBVIE-4129211

PATIENT
  Sex: Female
  Weight: 82 kg

DRUGS (1)
  1. RINVOQ [Suspect]
     Active Substance: UPADACITINIB
     Indication: Rheumatoid arthritis
     Route: 048
     Dates: start: 2021, end: 202210

REACTIONS (4)
  - Cataract [Recovered/Resolved]
  - Finger deformity [Unknown]
  - Heart valve calcification [Not Recovered/Not Resolved]
  - Arthralgia [Unknown]

NARRATIVE: CASE EVENT DATE: 20220101
